FAERS Safety Report 8376465-X (Version None)
Quarter: 2012Q2

REPORT INFORMATION
  Report Type: 
  Country: None (occurrence: None)
  Receive Date: 20120517
  Receipt Date: 20120429
  Transmission Date: 20120825
  Serious: Yes (Hospitalization)
  Sender: FDA-Public Use
  Company Number: 001219335A

PATIENT
  Age: 61 Year
  Sex: Female

DRUGS (2)
  1. PROACTIV [Suspect]
     Indication: ACNE
     Dosage: ONCE DERMAL DAILY
     Dates: start: 20120414, end: 20120425
  2. BLOOD PRESSURE MEDICATION [Concomitant]

REACTIONS (9)
  - BLISTER [None]
  - PAIN [None]
  - EYE SWELLING [None]
  - SWELLING FACE [None]
  - RASH [None]
  - PRURITUS [None]
  - DRY SKIN [None]
  - SKIN TIGHTNESS [None]
  - SCAB [None]
